FAERS Safety Report 6663615-6 (Version None)
Quarter: 2010Q2

REPORT INFORMATION
  Report Type: 
  Country: None (occurrence: None)
  Receive Date: 20100401
  Receipt Date: 20100324
  Transmission Date: 20101027
  Serious: No
  Sender: FDA-Public Use
  Company Number: JP-ROCHE-394696

PATIENT
  Sex: Female

DRUGS (5)
  1. TAMIFLU [Suspect]
     Dosage: DOSAGE REGIMEN REPORTED AS 150MG
     Route: 048
     Dates: start: 20050119, end: 20050120
  2. FLOMOX [Concomitant]
     Dosage: DOSAGE REGIMEN REPORTED AS 300 MG
     Route: 048
     Dates: start: 20050119, end: 20050122
  3. MUCODYNE [Concomitant]
     Dosage: DOSAGE REGIMEN REPORTED AS 1500 MG
     Route: 048
     Dates: start: 20050119, end: 20050122
  4. CALONAL [Concomitant]
     Dosage: DOSAGE REGIMEN REPORTED AS 400 MG
  5. HOKUNALIN [Concomitant]
     Dosage: ROUTE REPORTED AS TAPE. DOSAGE REGIMEN REPORTED AS 2 MG.
     Dates: start: 20050119, end: 20050123

REACTIONS (2)
  - NO ADVERSE EVENT [None]
  - PREGNANCY [None]
